FAERS Safety Report 5688823-2 (Version None)
Quarter: 2008Q1

REPORT INFORMATION
  Report Type: 
  Country: None (occurrence: None)
  Receive Date: 20080331
  Receipt Date: 20011024
  Transmission Date: 20080703
  Serious: Yes (Death)
  Sender: FDA-Public Use
  Company Number: CN-ROCHE-300311

PATIENT
  Age: 54 Day
  Sex: Male
  Weight: 5.2 kg

DRUGS (1)
  1. ROCEPHIN [Suspect]
     Route: 030
     Dates: start: 20011019

REACTIONS (2)
  - AGITATION [None]
  - DEATH [None]
